FAERS Safety Report 8819949 (Version 1)
Quarter: 2012Q4

REPORT INFORMATION
  Report Type: 
  Country: US (occurrence: US)
  Receive Date: 20121001
  Receipt Date: 20121001
  Transmission Date: 20130627
  Serious: Yes (Hospitalization)
  Sender: FDA-Public Use
  Company Number: US-ALEXION PHARMACEUTICALS INC.-A201201820

PATIENT

DRUGS (3)
  1. SOLIRIS 300MG [Suspect]
     Indication: PAROXYSMAL NOCTURNAL HAEMOGLOBINURIA
     Dosage: 900 mg, UNK
     Route: 042
  2. SOLIRIS 300MG [Suspect]
     Dosage: 1200 mg, UNK
     Route: 042
  3. SOLIRIS 300MG [Suspect]
     Dosage: 900 mg, UNK
     Route: 042

REACTIONS (2)
  - Malaise [Not Recovered/Not Resolved]
  - Blood lactate dehydrogenase increased [Not Recovered/Not Resolved]
